FAERS Safety Report 17700175 (Version 1)
Quarter: 2020Q2

REPORT INFORMATION
  Report Type: Spontaneous
  Country: US (occurrence: US)
  Receive Date: 20200423
  Receipt Date: 20200423
  Transmission Date: 20200714
  Serious: Yes (Hospitalization, Other)
  Sender: FDA-Public Use
  Company Number: US-GLAXOSMITHKLINE-US2020GSK068160

PATIENT
  Age: 77 Year
  Sex: Female

DRUGS (9)
  1. FLUVOXAMINE [Suspect]
     Active Substance: FLUVOXAMINE
     Indication: DEPRESSION
     Dosage: UNK
  2. LEVETIRACETAM. [Suspect]
     Active Substance: LEVETIRACETAM
     Indication: ELECTROENCEPHALOGRAM ABNORMAL
     Dosage: 500 MG, BID
  3. LEVETIRACETAM. [Suspect]
     Active Substance: LEVETIRACETAM
     Dosage: TAPER
  4. LAMOTRIGINE. [Suspect]
     Active Substance: LAMOTRIGINE
     Indication: ELECTROENCEPHALOGRAM ABNORMAL
     Dosage: UNK
  5. MIRTAZAPINE. [Suspect]
     Active Substance: MIRTAZAPINE
     Indication: POST STROKE DEPRESSION
     Dosage: UNK
  6. LAMOTRIGINE. [Suspect]
     Active Substance: LAMOTRIGINE
     Dosage: TAPER
  7. SERTRALINE [Suspect]
     Active Substance: SERTRALINE HYDROCHLORIDE
     Indication: DEPRESSION
     Dosage: MONOTHERAPY
  8. VENLAFAXINE [Suspect]
     Active Substance: VENLAFAXINE HYDROCHLORIDE
     Indication: DEPRESSION
     Dosage: UNK
  9. OLANZAPINE. [Suspect]
     Active Substance: OLANZAPINE
     Indication: DEPRESSION
     Dosage: UNK

REACTIONS (20)
  - Major depression [Recovered/Resolved]
  - Loss of personal independence in daily activities [Unknown]
  - Feeding disorder [Recovered/Resolved]
  - Weight decreased [Unknown]
  - Abulia [Unknown]
  - Feeling guilty [Unknown]
  - Condition aggravated [Recovered/Resolved]
  - Fear-related avoidance of activities [Unknown]
  - Catastrophic reaction [Unknown]
  - Mood altered [Recovered/Resolved]
  - Apathy [Unknown]
  - Poverty of thought content [Unknown]
  - Fear [Unknown]
  - Therapeutic product effect incomplete [Unknown]
  - Anxiety [Recovered/Resolved]
  - Poor personal hygiene [Unknown]
  - Social avoidant behaviour [Unknown]
  - Treatment noncompliance [Unknown]
  - Depression [Recovered/Resolved]
  - Feeling of despair [Unknown]
